FAERS Safety Report 24620714 (Version 1)
Quarter: 2024Q4

REPORT INFORMATION
  Report Type: Spontaneous
  Country: TW (occurrence: TW)
  Receive Date: 20241114
  Receipt Date: 20241114
  Transmission Date: 20250114
  Serious: Yes (Other)
  Sender: GLAXOSMITHKLINE
  Company Number: TW-GSKCCFAPAC-Case-02104370_AE-89806

PATIENT

DRUGS (1)
  1. WELLBUTRIN XL [Suspect]
     Active Substance: BUPROPION HYDROCHLORIDE
     Indication: Product used for unknown indication
     Dosage: 150 MG

REACTIONS (3)
  - Cerebrovascular accident [Unknown]
  - Deep vein thrombosis [Unknown]
  - Gait disturbance [Unknown]
